FAERS Safety Report 21079294 (Version 1)
Quarter: 2022Q3

REPORT INFORMATION
  Report Type: Report from Study
  Country: CA (occurrence: CA)
  Receive Date: 20220714
  Receipt Date: 20220714
  Transmission Date: 20221027
  Serious: Yes (Other)
  Sender: FDA-Public Use
  Company Number: CA-JNJFOC-20220717994

PATIENT
  Age: 15 Year
  Sex: Female
  Weight: 69 kg

DRUGS (2)
  1. REMICADE [Suspect]
     Active Substance: INFLIXIMAB
     Indication: Colitis ulcerative
     Route: 042
     Dates: start: 20220610
  2. REMICADE [Suspect]
     Active Substance: INFLIXIMAB
     Dosage: 700MG AT WEEK 6 INDUCTION DOSE
     Route: 042

REACTIONS (4)
  - Rectal haemorrhage [Unknown]
  - Stoma creation [Unknown]
  - Abdominal pain [Unknown]
  - Off label use [Unknown]
